FAERS Safety Report 15366902 (Version 1)
Quarter: 2018Q3

REPORT INFORMATION
  Report Type: Spontaneous
  Country: US (occurrence: US)
  Receive Date: 20180902
  Receipt Date: 20180902
  Transmission Date: 20181010
  Serious: No
  Sender: FDA-Public Use
  Company Number: None

PATIENT
  Age: 55 Year
  Sex: Female
  Weight: 69.75 kg

DRUGS (5)
  1. SULFAME/TRI DS [Suspect]
     Active Substance: SULFAMETHOXAZOLE\TRIMETHOPRIM
     Indication: STAPHYLOCOCCAL INFECTION
     Dosage: ?          OTHER STRENGTH:160;QUANTITY:1 TABLET(S);?
     Route: 048
     Dates: start: 20171229, end: 20180103
  2. TURMERIC [Concomitant]
     Active Substance: HERBALS\TURMERIC
  3. ALEVE [Concomitant]
     Active Substance: NAPROXEN SODIUM
  4. BOSWELIA [Concomitant]
  5. CALCIUM [Concomitant]
     Active Substance: CALCIUM

REACTIONS (5)
  - Pyrexia [None]
  - Hypersensitivity [None]
  - Urticaria [None]
  - Pruritus [None]
  - Rash [None]

NARRATIVE: CASE EVENT DATE: 20171229
